FAERS Safety Report 19675148 (Version 1)
Quarter: 2021Q3

REPORT INFORMATION
  Report Type: Spontaneous
  Country: US (occurrence: US)
  Receive Date: 20210809
  Receipt Date: 20210809
  Transmission Date: 20211014
  Serious: No
  Sender: FDA-Public Use
  Company Number: US-AUROBINDO-AUR-APL-2021-008182

PATIENT

DRUGS (2)
  1. LEVOFLOXACIN 500MG [Suspect]
     Active Substance: LEVOFLOXACIN
     Indication: ACUTE SINUSITIS
  2. LEVOFLOXACIN 500MG [Suspect]
     Active Substance: LEVOFLOXACIN
     Indication: BRONCHITIS
     Dosage: 1 DOSAGE FORM (1 PILL)
     Route: 065

REACTIONS (5)
  - Monoparesis [Unknown]
  - Impaired work ability [Unknown]
  - Dysstasia [Unknown]
  - Pain [Unknown]
  - Arthralgia [Unknown]
